FAERS Safety Report 7999410-5 (Version None)
Quarter: 2011Q4

REPORT INFORMATION
  Report Type: 
  Country: None (occurrence: None)
  Receive Date: 20111221
  Receipt Date: 20111215
  Transmission Date: 20120403
  Serious: Yes (Death, Other)
  Sender: FDA-Public Use
  Company Number: US-ELI_LILLY_AND_COMPANY-US201112004427

PATIENT
  Age: 55 Year
  Sex: Male

DRUGS (1)
  1. HUMULIN R [Suspect]
     Dosage: UNK

REACTIONS (3)
  - DEATH [None]
  - ARTERIAL OCCLUSIVE DISEASE [None]
  - BLOOD GLUCOSE DECREASED [None]
